FAERS Safety Report 17943876 (Version 2)
Quarter: 2020Q3

REPORT INFORMATION
  Report Type: Spontaneous
  Country: NL (occurrence: GB)
  Receive Date: 20200625
  Receipt Date: 20200708
  Transmission Date: 20201103
  Serious: Yes (Life-Threatening, Hospitalization, Other)
  Sender: FDA-Public Use
  Company Number: GB-FRESENIUS KABI-FK202006118

PATIENT
  Age: 26 Year
  Sex: Male
  Weight: 79.5 kg

DRUGS (8)
  1. DOCUSATE SODIUM. [Concomitant]
     Active Substance: DOCUSATE SODIUM
     Indication: CONSTIPATION
     Dosage: UNK, AS NEEDED
     Dates: start: 20200424
  2. MORPHINE SULFATE. [Concomitant]
     Active Substance: MORPHINE SULFATE
     Indication: PAIN
     Dosage: 10MG/5ML LIQUID, AS NEEDED
     Dates: start: 20200424
  3. ENOXOLONE/POVIDONE/HYALURONATE SODIUM [Concomitant]
     Indication: MUCOSAL INFLAMMATION
     Dosage: UNK UNK, AS NEEDED
     Dates: start: 20200424
  4. SODIUM CHLORIDE (MANUFACTURER UNKNOWN) [Suspect]
     Active Substance: SODIUM CHLORIDE
     Indication: PRODUCT USED FOR UNKNOWN INDICATION
     Dosage: UNK
     Route: 065
  5. ACETAZOLAMIDE. [Concomitant]
     Active Substance: ACETAZOLAMIDE
     Indication: PAPILLOEDEMA
     Dosage: BD DOSING
     Dates: start: 20200424
  6. PARACETAMOL [Concomitant]
     Active Substance: ACETAMINOPHEN
     Indication: PAIN
     Dosage: 1 G, 4X/DAY AS NEEDED
     Dates: start: 20200424
  7. BENZYDAMINE HYDROCHLORIDE [Concomitant]
     Active Substance: BENZYDAMINE HYDROCHLORIDE
     Indication: MUCOSAL INFLAMMATION
     Dosage: UNK UNK, AS NEEDED
     Dates: start: 20200424
  8. METHOTREXATE SODIUM. [Suspect]
     Active Substance: METHOTREXATE SODIUM
     Indication: PRODUCT USED FOR UNKNOWN INDICATION
     Dosage: 21800 MG IN 1000 ML NACL 0.9 PERCENT
     Route: 065

REACTIONS (5)
  - Intraocular pressure increased [Unknown]
  - Intracranial pressure increased [Unknown]
  - Headache [Unknown]
  - Leukoencephalopathy [Not Recovered/Not Resolved]
  - Visual impairment [Unknown]

NARRATIVE: CASE EVENT DATE: 20200424
